FAERS Safety Report 22296036 (Version 2)
Quarter: 2023Q2

REPORT INFORMATION
  Report Type: Spontaneous
  Country: BR (occurrence: BR)
  Receive Date: 20230508
  Receipt Date: 20230522
  Transmission Date: 20230722
  Serious: Yes (Hospitalization, Other)
  Sender: FDA-Public Use
  Company Number: BR-009507513-2305BRA001885

PATIENT
  Age: 58 Year
  Sex: Female

DRUGS (5)
  1. PEMBROLIZUMAB [Suspect]
     Active Substance: PEMBROLIZUMAB
     Indication: Brain cancer metastatic
     Dosage: UNK
     Dates: start: 201912, end: 202003
  2. PEMBROLIZUMAB [Suspect]
     Active Substance: PEMBROLIZUMAB
     Dosage: EVERY 21 DAYS
     Dates: start: 202003, end: 202010
  3. ALIMTA [Suspect]
     Active Substance: PEMETREXED DISODIUM
     Indication: Brain cancer metastatic
     Dosage: 4 CYCLES
     Dates: start: 201912, end: 202003
  4. ALIMTA [Suspect]
     Active Substance: PEMETREXED DISODIUM
     Dosage: UNK
     Dates: start: 202003
  5. CARBOPLATIN [Suspect]
     Active Substance: CARBOPLATIN
     Indication: Brain cancer metastatic
     Dosage: 4 CYCLES
     Dates: start: 201912, end: 202003

REACTIONS (4)
  - Malignant neoplasm oligoprogression [Unknown]
  - Pneumonitis [Unknown]
  - Therapy partial responder [Unknown]
  - Product use in unapproved indication [Unknown]

NARRATIVE: CASE EVENT DATE: 20191201
